FAERS Safety Report 19948539 (Version 1)
Quarter: 2021Q4

REPORT INFORMATION
  Report Type: Spontaneous
  Country: US (occurrence: US)
  Receive Date: 20211012
  Receipt Date: 20211012
  Transmission Date: 20220303
  Serious: No
  Sender: FDA-Public Use
  Company Number: US-009507513-2109USA007551

PATIENT
  Sex: Male

DRUGS (1)
  1. VERQUVO [Suspect]
     Active Substance: VERICIGUAT
     Dosage: 1.5 MILLIGRAM OR 5 MILLIGRAM
     Route: 048

REACTIONS (2)
  - Anaemia [Recovered/Resolved]
  - Incorrect dose administered [Unknown]
